FAERS Safety Report 9522614 (Version 4)
Quarter: 2013Q4

REPORT INFORMATION
  Report Type: Spontaneous
  Country: US (occurrence: US)
  Receive Date: 20130913
  Receipt Date: 20131031
  Transmission Date: 20140711
  Serious: Yes (Other)
  Sender: FDA-Public Use
  Company Number: US-JNJFOC-20130903732

PATIENT
  Sex: Male
  Weight: 139.71 kg

DRUGS (7)
  1. REMICADE [Suspect]
     Indication: PSORIATIC ARTHROPATHY
     Route: 042
     Dates: start: 20130716
  2. REMICADE [Suspect]
     Indication: PSORIATIC ARTHROPATHY
     Route: 042
     Dates: start: 20130913, end: 20130913
  3. NITROGLYCERINE [Concomitant]
     Indication: CHEST PAIN
     Route: 065
  4. ATENOLOL [Concomitant]
     Dosage: HALF TABLET QD
     Route: 065
     Dates: end: 20130910
  5. AZATHIOPRINE [Concomitant]
     Indication: PSORIATIC ARTHROPATHY
     Route: 065
  6. TYLENOL [Concomitant]
     Dosage: FREQUENCY: ONCE (UNSPECIFIED)
     Route: 048
     Dates: start: 20130906, end: 20130913
  7. ZYRTEC [Concomitant]
     Dosage: FREQUENCY: ONCE (UNSPECIFIED)
     Route: 048
     Dates: start: 20130906, end: 20130913

REACTIONS (1)
  - Cardiac disorder [Unknown]
